FAERS Safety Report 14182989 (Version 1)
Quarter: 2017Q4

REPORT INFORMATION
  Report Type: Spontaneous
  Country: CN (occurrence: CN)
  Receive Date: 20171113
  Receipt Date: 20171113
  Transmission Date: 20180321
  Serious: Yes (Death, Other)
  Sender: FDA-Public Use
  Company Number: CN-BAYER-2017-213916

PATIENT
  Age: 70 Year
  Sex: Female

DRUGS (1)
  1. ACETYLSALICYLIC ACID (} 100 MG) [Suspect]
     Active Substance: ASPIRIN
     Indication: NECK PAIN
     Dosage: 2 DF, UNK

REACTIONS (8)
  - Brain stem haemorrhage [Fatal]
  - Hemiplegia [None]
  - Vomiting [None]
  - Intraventricular haemorrhage [None]
  - Headache [None]
  - Subarachnoid haemorrhage [None]
  - Hydrocephalus [None]
  - Nuchal rigidity [None]
